FAERS Safety Report 9343810 (Version 1)
Quarter: 2013Q2

REPORT INFORMATION
  Report Type: Spontaneous
  Country: US (occurrence: US)
  Receive Date: 20130612
  Receipt Date: 20130612
  Transmission Date: 20140414
  Serious: Yes (Hospitalization)
  Sender: FDA-Public Use
  Company Number: US-JNJFOC-20130600109

PATIENT
  Age: 26 Year
  Sex: Female
  Weight: 77.11 kg

DRUGS (3)
  1. INVEGA [Suspect]
     Indication: BIPOLAR DISORDER
     Route: 048
     Dates: start: 201304
  2. DEPAKOTE [Suspect]
     Indication: BIPOLAR DISORDER
     Route: 065
     Dates: start: 201304, end: 201305
  3. LAMICTAL [Concomitant]
     Indication: BIPOLAR DISORDER
     Route: 048
     Dates: start: 20130522

REACTIONS (2)
  - Bipolar disorder [Not Recovered/Not Resolved]
  - Drug dose omission [Not Recovered/Not Resolved]
